FAERS Safety Report 7360076-9 (Version None)
Quarter: 2011Q1

REPORT INFORMATION
  Report Type: 
  Country: None (occurrence: None)
  Receive Date: 20110318
  Receipt Date: 20110309
  Transmission Date: 20110831
  Serious: Yes (Death)
  Sender: FDA-Public Use
  Company Number: US-ELI_LILLY_AND_COMPANY-US201103003691

PATIENT
  Age: 64 Year
  Sex: Female

DRUGS (14)
  1. HYCODAN [Concomitant]
     Indication: COUGH
     Dates: start: 20100101
  2. AMIODARONE [Concomitant]
     Indication: VENTRICULAR ARRHYTHMIA
     Dates: start: 20101201
  3. ZOFRAN [Concomitant]
     Indication: PROPHYLAXIS
     Dates: start: 20091001
  4. GEMCITABINE HYDROCHLORIDE [Suspect]
     Indication: LUNG CARCINOMA CELL TYPE UNSPECIFIED STAGE IV
     Dosage: 1680 MG, UNK
     Route: 042
     Dates: start: 20110105, end: 20110105
  5. PREVACID [Concomitant]
     Indication: DYSPHAGIA
     Dates: start: 20110118
  6. OXYCODONE HCL [Concomitant]
     Indication: CHEST PAIN
     Dates: start: 20090101
  7. ATIVAN [Concomitant]
     Indication: ANXIETY
     Dates: start: 20091001
  8. GEMCITABINE HYDROCHLORIDE [Suspect]
     Dosage: 1268 MG, UNK
     Route: 042
     Dates: start: 20110118
  9. NITROGLYCERIN [Concomitant]
     Indication: CORONARY ARTERY DISEASE
     Dates: start: 20090101
  10. TASISULAM SODIUM [Suspect]
     Indication: LUNG CARCINOMA CELL TYPE UNSPECIFIED STAGE IV
     Dosage: 1713 MG, UNK
     Route: 042
     Dates: start: 20110105
  11. LEVOXYL [Concomitant]
     Indication: HYPOTHYROIDISM
     Dates: start: 20030101
  12. ASPIRIN [Concomitant]
     Indication: PROPHYLAXIS
     Dates: start: 20090101
  13. CLINDAMYCIN [Concomitant]
     Indication: PROPHYLAXIS
     Dates: start: 20100601
  14. PREDNISONE TAB [Concomitant]
     Indication: DYSPNOEA
     Dates: start: 20101201

REACTIONS (1)
  - DEATH [None]
